FAERS Safety Report 15896659 (Version 3)
Quarter: 2019Q2

REPORT INFORMATION
  Report Type: Spontaneous
  Country: US (occurrence: US)
  Receive Date: 20190131
  Receipt Date: 20190627
  Transmission Date: 20190711
  Serious: No
  Sender: FDA-Public Use
  Company Number: US-PFIZER INC-2019044673

PATIENT
  Age: 63 Year
  Sex: Female

DRUGS (2)
  1. XELJANZ XR [Suspect]
     Active Substance: TOFACITINIB CITRATE
     Dosage: 11 MG, DAILY (NIGHT)
     Route: 048
     Dates: start: 20181221, end: 2019
  2. PRAVASTATIN. [Concomitant]
     Active Substance: PRAVASTATIN
     Dosage: UNK

REACTIONS (7)
  - Pain [Recovered/Resolved]
  - Blood cholesterol increased [Unknown]
  - Upper respiratory tract infection [Recovered/Resolved]
  - Headache [Recovered/Resolved]
  - Dyspepsia [Unknown]
  - Drug ineffective [Unknown]
  - Blood glucose increased [Unknown]
